FAERS Safety Report 21252605 (Version 4)
Quarter: 2023Q2

REPORT INFORMATION
  Report Type: Other
  Country: US (occurrence: None)
  Receive Date: 20220825
  Receipt Date: 20230510
  Transmission Date: 20230721
  Serious: Yes (Hospitalization, Other)
  Sender: FDA-Public Use
  Company Number: US-ROCHE-2661526

PATIENT
  Age: 63 Year
  Sex: Female
  Weight: 72.640 kg

DRUGS (16)
  1. OCREVUS [Suspect]
     Active Substance: OCRELIZUMAB
     Indication: Relapsing-remitting multiple sclerosis
     Dosage: SUBSEQUENT DOSES WERE RECEIVED ON 20/DEC/2017, /AUG/2018 (600 MG, EVERY 6 MONTHS), 20/DEC/2017, 03/J
     Route: 042
     Dates: start: 2013
  2. OCREVUS [Suspect]
     Active Substance: OCRELIZUMAB
     Route: 042
     Dates: start: 202302
  3. FLEXERIL [Concomitant]
     Active Substance: CYCLOBENZAPRINE HYDROCHLORIDE
     Indication: Muscle spasms
     Dosage: PATIENT TAKES 2 PILLS AT ONSET OF CRAMPS
     Route: 048
  4. IRBESARTAN [Concomitant]
     Active Substance: IRBESARTAN
     Indication: Hypertension
     Dosage: LAST FILL OF 90-DAY SUPPLY ON 27/JUL/2020
     Route: 048
     Dates: start: 202005
  5. AMLODIPINE [Concomitant]
     Active Substance: AMLODIPINE BESYLATE
     Indication: Hypertension
     Route: 048
     Dates: start: 202005
  6. ROSUVASTATIN [Concomitant]
     Active Substance: ROSUVASTATIN
     Indication: Blood cholesterol increased
     Route: 048
     Dates: start: 201907
  7. ALLEGRA [Concomitant]
     Active Substance: FEXOFENADINE HYDROCHLORIDE
     Indication: Pruritus
     Dosage: AS NEEDED
     Route: 048
  8. KLONOPIN [Concomitant]
     Active Substance: CLONAZEPAM
     Dates: end: 20200215
  9. ZOLOFT [Concomitant]
     Active Substance: SERTRALINE HYDROCHLORIDE
     Dates: end: 20200215
  10. ALPRAZOLAM [Concomitant]
     Active Substance: ALPRAZOLAM
     Dosage: AS NEEDED
     Dates: end: 20200215
  11. TIZANIDINE [Concomitant]
     Active Substance: TIZANIDINE
     Dates: end: 20200215
  12. TRAZODONE [Concomitant]
     Active Substance: TRAZODONE HYDROCHLORIDE
     Dosage: AT BEDTIME
     Dates: end: 20200215
  13. VITAMIN B12 [Concomitant]
     Active Substance: CYANOCOBALAMIN
     Dosage: 2000 MCG
     Dates: end: 20200215
  14. PANTOPRAZOLE [Concomitant]
     Active Substance: PANTOPRAZOLE
     Dates: end: 20200215
  15. MYRBETRIQ [Concomitant]
     Active Substance: MIRABEGRON
     Dates: end: 20200215
  16. MACROBID [Concomitant]
     Active Substance: NITROFURANTOIN\NITROFURANTOIN MONOHYDRATE
     Dates: end: 20200215

REACTIONS (21)
  - Skin discolouration [Not Recovered/Not Resolved]
  - Dizziness [Not Recovered/Not Resolved]
  - Asthenia [Not Recovered/Not Resolved]
  - Memory impairment [Not Recovered/Not Resolved]
  - Dysstasia [Not Recovered/Not Resolved]
  - Fall [Unknown]
  - Contusion [Not Recovered/Not Resolved]
  - Loss of consciousness [Recovered/Resolved]
  - Hand fracture [Recovered/Resolved]
  - Intentional product misuse [Unknown]
  - Pain in extremity [Not Recovered/Not Resolved]
  - Tremor [Not Recovered/Not Resolved]
  - Gait disturbance [Not Recovered/Not Resolved]
  - Pneumonia [Recovered/Resolved]
  - Sepsis [Recovered/Resolved]
  - Chronotropic incompetence [Not Recovered/Not Resolved]
  - Hypertension [Not Recovered/Not Resolved]
  - Blood cholesterol increased [Not Recovered/Not Resolved]
  - Weight decreased [Not Recovered/Not Resolved]
  - Dyspnoea [Recovered/Resolved]
  - Chest pain [Recovered/Resolved]

NARRATIVE: CASE EVENT DATE: 20190601
